FAERS Safety Report 24177645 (Version 1)
Quarter: 2024Q3

REPORT INFORMATION
  Report Type: Spontaneous
  Country: US (occurrence: US)
  Receive Date: 20240806
  Receipt Date: 20240806
  Transmission Date: 20241016
  Serious: No
  Sender: CIPLA
  Company Number: US-CIPLA LTD.-2023US06186

PATIENT

DRUGS (2)
  1. CYCLOBENZAPRINE [Suspect]
     Active Substance: CYCLOBENZAPRINE
     Indication: Muscle spasms
     Dosage: UNK, BID (TWICE A DAY FOR A COUPLE OF WEEKS )
     Route: 065
  2. ALEVE [Concomitant]
     Active Substance: NAPROXEN SODIUM
     Indication: Muscle spasms
     Dosage: UNK, BID (TWICE A DAY FOR A COUPLE OF WEEKS )
     Route: 065

REACTIONS (7)
  - Muscle tightness [Unknown]
  - Muscle spasms [Unknown]
  - Allergy to chemicals [Unknown]
  - Product use complaint [Unknown]
  - Somnolence [Unknown]
  - Dry mouth [Unknown]
  - Dizziness [Unknown]
